FAERS Safety Report 5930607-1 (Version None)
Quarter: 2008Q4

REPORT INFORMATION
  Report Type: 
  Country: None (occurrence: None)
  Receive Date: 20081027
  Receipt Date: 20081014
  Transmission Date: 20090506
  Serious: Yes (Hospitalization, Other)
  Sender: FDA-Public Use
  Company Number: FR-JNJFOC-20080902362

PATIENT
  Sex: Male
  Weight: 86 kg

DRUGS (6)
  1. DURAGESIC-100 [Suspect]
     Indication: PAIN
     Route: 062
  2. GABAPENTIN [Concomitant]
     Indication: PAIN
     Route: 048
  3. OMEPRAZOLE [Concomitant]
     Indication: ULCER
     Route: 048
  4. TRANXENE [Concomitant]
     Indication: ANXIETY
     Route: 048
  5. CLOMIPRAMINE HCL [Concomitant]
     Indication: DEPRESSION
     Route: 048
  6. KARDEGIC [Concomitant]
     Indication: PLATELET AGGREGATION INHIBITION
     Route: 048

REACTIONS (6)
  - ERYTHEMA [None]
  - INAPPROPRIATE SCHEDULE OF DRUG ADMINISTRATION [None]
  - MALAISE [None]
  - PAIN IN EXTREMITY [None]
  - PALLOR [None]
  - WITHDRAWAL SYNDROME [None]
